FAERS Safety Report 13682646 (Version 4)
Quarter: 2020Q2

REPORT INFORMATION
  Report Type: Spontaneous
  Country: FR (occurrence: FR)
  Receive Date: 20170623
  Receipt Date: 20200416
  Transmission Date: 20200713
  Serious: Yes (Congenital Anomaly)
  Sender: FDA-Public Use
  Company Number: FR-TEVA-779188ROM

PATIENT

DRUGS (4)
  1. THIOCOLCHICOSIDE [Suspect]
     Active Substance: THIOCOLCHICOSIDE
     Indication: BACK PAIN
     Dosage: THERAPY DURATION: A FEW DAYS
     Route: 064
     Dates: start: 20161126
  2. IBUPROFEN. [Suspect]
     Active Substance: IBUPROFEN
     Indication: BACK PAIN
     Dosage: 200 MILLIGRAM DAILY;
     Route: 064
     Dates: start: 201611, end: 201611
  3. LEELOO 0.1 MG/0.02 MG [Suspect]
     Active Substance: ETHINYL ESTRADIOL\LEVONORGESTREL
     Indication: CONTRACEPTION
     Dosage: 1 DOSAGE FORM = 0.02 MG ETHINYLESTRADIOL + 0.1 MG LEVONORGESTREL. LONG-STANDING TREATMENT
     Route: 064
     Dates: end: 201612
  4. PARACETAMOL [Suspect]
     Active Substance: ACETAMINOPHEN
     Indication: BACK PAIN
     Dosage: 500 MILLIGRAM DAILY; THERAPY DURATION: A FEW DAYS
     Route: 064
     Dates: start: 20161124

REACTIONS (4)
  - Tricuspid valve incompetence [Not Recovered/Not Resolved]
  - Phalangeal hypoplasia [Not Recovered/Not Resolved]
  - Clinodactyly [Not Recovered/Not Resolved]
  - Foetal exposure during pregnancy [Unknown]

NARRATIVE: CASE EVENT DATE: 201703
